FAERS Safety Report 7548536-9 (Version None)
Quarter: 2011Q2

REPORT INFORMATION
  Report Type: 
  Country: None (occurrence: None)
  Receive Date: 20110615
  Receipt Date: 20110606
  Transmission Date: 20111010
  Serious: Yes (Hospitalization, Other)
  Sender: FDA-Public Use
  Company Number: US-BAYER-201034578NA

PATIENT
  Age: 41 Year
  Sex: Female
  Weight: 108.84 kg

DRUGS (12)
  1. PRENATAL VITAMINS [Concomitant]
     Indication: VITAMIN SUPPLEMENTATION
     Dosage: 1 DF, QD
     Dates: start: 20070101
  2. BENADRYL [Concomitant]
     Indication: MULTIPLE ALLERGIES
     Dosage: 25 MG, PRN
     Route: 048
     Dates: start: 20080101
  3. NAPROXEN SODIUM + PSEUDOEPHEDRINE [Concomitant]
     Indication: PRODUCT USED FOR UNKNOWN INDICATION
     Dosage: 500 MG, BID
     Dates: start: 20080214, end: 20080905
  4. GABAPENTIN [Concomitant]
     Indication: PAIN
     Dosage: 900 MG, QD
     Route: 048
     Dates: start: 20070101
  5. ACYCLOVIR [Concomitant]
     Route: 048
  6. PREDNISONE [Concomitant]
     Indication: PRODUCT USED FOR UNKNOWN INDICATION
     Dosage: 10 MG, UNK
     Dates: start: 20080625, end: 20080905
  7. MOTRIN [Concomitant]
     Route: 048
  8. PROZAC [Concomitant]
     Indication: PREMENSTRUAL SYNDROME
     Dosage: 40 MG, PRN
     Route: 048
  9. YAZ [Suspect]
     Indication: ENDOMETRIOSIS
     Dosage: UNK UNK, UNK
     Route: 048
     Dates: start: 20000101, end: 20080101
  10. YASMIN [Suspect]
     Indication: ENDOMETRIOSIS
     Dosage: UNK UNK, UNK
     Route: 048
     Dates: start: 20000101, end: 20080101
  11. INDOMETHACIN SODIUM [Concomitant]
     Dosage: 75 MG, BID
     Route: 048
  12. LORTAB [Concomitant]
     Route: 048

REACTIONS (4)
  - HYPOTENSION [None]
  - CARDIAC VENTRICULAR DISORDER [None]
  - TACHYCARDIA [None]
  - PULMONARY EMBOLISM [None]
